FAERS Safety Report 4281020-7 (Version None)
Quarter: 2004Q1

REPORT INFORMATION
  Report Type: 
  Country: None (occurrence: None)
  Receive Date: 20040123
  Receipt Date: 20030317
  Transmission Date: 20041129
  Serious: Yes (Hospitalization)
  Sender: FDA-Public Use
  Company Number: HQWYE166519MAR03

PATIENT
  Age: 58 Year
  Sex: Male
  Weight: 100.79 kg

DRUGS (18)
  1. CORDARONE [Suspect]
     Indication: ATRIAL FIBRILLATION
     Dosage: 300 TO 400 MG DAILY, ORAL
     Route: 048
     Dates: start: 19971120, end: 19980810
  2. AMIODARONE HCL [Suspect]
     Indication: ARRHYTHMIA
     Dosage: 200 TO 300 MG DAILY, ORAL
     Route: 048
     Dates: start: 19980810, end: 20010403
  3. ALBUTEROL [Concomitant]
  4. COUMADIN [Concomitant]
  5. LIPITOR [Concomitant]
  6. ZOLOFT [Concomitant]
  7. LASIX [Concomitant]
  8. TOPROL-XL [Concomitant]
  9. TAMBOCOR [Concomitant]
  10. NEURONTIN [Concomitant]
  11. FLONASE [Concomitant]
  12. ALTACE [Concomitant]
  13. ACTOS [Concomitant]
  14. WELLBUTRIN [Concomitant]
  15. XANAX [Concomitant]
  16. CELEBREX [Concomitant]
  17. GLUCOPHAGE [Concomitant]
  18. POTASSIUM (POTASSIUM) [Concomitant]

REACTIONS (3)
  - DRUG TOXICITY [None]
  - HYPERTHYROIDISM [None]
  - PNEUMONITIS [None]
